FAERS Safety Report 8261974-4 (Version None)
Quarter: 2012Q2

REPORT INFORMATION
  Report Type: 
  Country: None (occurrence: None)
  Receive Date: 20120402
  Receipt Date: 20120326
  Transmission Date: 20120825
  Serious: Yes (Hospitalization)
  Sender: FDA-Public Use
  Company Number: 2012SP016460

PATIENT
  Age: 29 Year
  Sex: Male

DRUGS (5)
  1. PEG-INTRON [Concomitant]
  2. VICTRELIS [Suspect]
     Indication: HEPATITIS C
     Dosage: 200 MG; ; PO
     Route: 048
     Dates: start: 20111110, end: 20120223
  3. NOZINAN [Concomitant]
  4. COPEGUS [Concomitant]
  5. LAMISIL DERMGEL [Concomitant]

REACTIONS (1)
  - PULMONARY EMBOLISM [None]
